FAERS Safety Report 4503309-6 (Version None)
Quarter: 2004Q4

REPORT INFORMATION
  Report Type: 
  Country: None (occurrence: None)
  Receive Date: 20041112
  Receipt Date: 20041028
  Transmission Date: 20050328
  Serious: Yes (Hospitalization)
  Sender: FDA-Public Use
  Company Number: 199055

PATIENT
  Age: 48 Year
  Sex: Female
  Weight: 100.6985 kg

DRUGS (4)
  1. AVONEX [Suspect]
     Indication: MULTIPLE SCLEROSIS
     Dosage: 10 MCG QW IM
     Route: 030
     Dates: start: 20031201
  2. ALBUTEROL [Concomitant]
  3. CLARINEX [Concomitant]
  4. HYZAAR [Concomitant]

REACTIONS (1)
  - INFLUENZA [None]
